FAERS Safety Report 10265862 (Version 4)
Quarter: 2014Q3

REPORT INFORMATION
  Report Type: Report from Study
  Country: CA (occurrence: CA)
  Receive Date: 20140627
  Receipt Date: 20140808
  Transmission Date: 20150326
  Serious: Yes (Hospitalization)
  Sender: FDA-Public Use
  Company Number: CA-BRISTOL-MYERS SQUIBB COMPANY-21076427

PATIENT
  Age: 78 Year
  Sex: Male

DRUGS (12)
  1. PULMICORT TURBUHALER [Concomitant]
     Active Substance: BUDESONIDE
  2. NITROGLYCERIN. [Concomitant]
     Active Substance: NITROGLYCERIN
  3. ORENCIA [Suspect]
     Active Substance: ABATACEPT
     Indication: RHEUMATOID ARTHRITIS
     Dosage: EXP:JUL2016
     Route: 042
     Dates: start: 20121205
  4. METHOTREXATE [Concomitant]
     Active Substance: METHOTREXATE
  5. PANTOPRAZOLE [Concomitant]
     Active Substance: PANTOPRAZOLE SODIUM
  6. PREDNISONE. [Concomitant]
     Active Substance: PREDNISONE
  7. BISOPROLOL [Concomitant]
     Active Substance: BISOPROLOL
  8. WARFARIN [Concomitant]
     Active Substance: WARFARIN
  9. ATROVENT [Concomitant]
     Active Substance: IPRATROPIUM BROMIDE
  10. FOLIC ACID. [Concomitant]
     Active Substance: FOLIC ACID
  11. RAMIPRIL. [Concomitant]
     Active Substance: RAMIPRIL
  12. ASPIRIN. [Concomitant]
     Active Substance: ASPIRIN

REACTIONS (6)
  - Confusional state [Unknown]
  - Infusion site haemorrhage [Unknown]
  - Fall [Unknown]
  - Hypotension [Unknown]
  - Respiratory rate decreased [Unknown]
  - Dyspnoea [Unknown]

NARRATIVE: CASE EVENT DATE: 201406
